FAERS Safety Report 7542271-9 (Version None)
Quarter: 2011Q2

REPORT INFORMATION
  Report Type: 
  Country: None (occurrence: None)
  Receive Date: 20110606
  Receipt Date: 20110523
  Transmission Date: 20111010
  Serious: Yes (Hospitalization)
  Sender: FDA-Public Use
  Company Number: 2011MA006368

PATIENT
  Age: 43 Year
  Sex: Male

DRUGS (2)
  1. VALPROIC ACID [Suspect]
     Dosage: 1 GM;BID
  2. RISPERIDONE [Suspect]
     Indication: SCHIZOAFFECTIVE DISORDER
     Dosage: 4 MG;HS

REACTIONS (3)
  - PAIN [None]
  - ERECTION INCREASED [None]
  - PAINFUL ERECTION [None]
